FAERS Safety Report 10243080 (Version 4)
Quarter: 2014Q3

REPORT INFORMATION
  Report Type: Spontaneous
  Country: US (occurrence: None)
  Receive Date: 20140616
  Receipt Date: 20140801
  Transmission Date: 20150326
  Serious: Yes (Death, Other)
  Sender: FDA-Public Use
  Company Number: ADR-2014-01017

PATIENT
  Age: 47 Year
  Sex: Male

DRUGS (4)
  1. BACLOFEN. [Suspect]
     Active Substance: BACLOFEN
     Indication: PAIN
  2. CLONIDINE. [Suspect]
     Active Substance: CLONIDINE
  3. BUPIVACAINE [Suspect]
     Active Substance: BUPIVACAINE
  4. MORPHINE [Suspect]
     Active Substance: MORPHINE

REACTIONS (2)
  - Death [None]
  - Homicide [None]

NARRATIVE: CASE EVENT DATE: 20140524
